FAERS Safety Report 6098356-X (Version None)
Quarter: 2009Q1

REPORT INFORMATION
  Report Type: 
  Country: None (occurrence: None)
  Receive Date: 20090302
  Receipt Date: 20090217
  Transmission Date: 20090719
  Serious: Yes (Hospitalization)
  Sender: FDA-Public Use
  Company Number: JP-ELI_LILLY_AND_COMPANY-JP200812005805

PATIENT
  Sex: Male
  Weight: 62 kg

DRUGS (9)
  1. GEMCITABINE HCL [Suspect]
     Indication: PANCREATIC CARCINOMA NON-RESECTABLE
     Dosage: 1700 MG, WEEKLY (1/W)
     Route: 042
     Dates: start: 20080411, end: 20080418
  2. GEMCITABINE HCL [Suspect]
     Dosage: 1250 MG, WEEKLY (1/W)
     Route: 042
     Dates: start: 20080425, end: 20080509
  3. GEMCITABINE HCL [Suspect]
     Dosage: 940 MG, WEEKLY (1/W)
     Route: 042
     Dates: start: 20080516, end: 20080704
  4. GEMCITABINE HCL [Suspect]
     Dosage: 730 MG, WEEKLY (1/W)
     Route: 042
     Dates: start: 20080711, end: 20081017
  5. PLACEBO [Suspect]
     Indication: PANCREATIC CARCINOMA NON-RESECTABLE
     Dosage: 5 MG, 2/D
     Route: 048
     Dates: start: 20080411, end: 20080925
  6. PLACEBO [Suspect]
     Dosage: 3 MG, 2/D
     Route: 048
     Dates: start: 20080926, end: 20081022
  7. ZYLORIC [Concomitant]
     Indication: HYPERURICAEMIA
     Dosage: 100 MG, DAILY (1/D)
     Route: 048
     Dates: start: 20080808
  8. LOPEMIN [Concomitant]
     Indication: DIARRHOEA
     Dosage: 1 MG, AS NEEDED
     Route: 048
     Dates: start: 20080829
  9. POSTERISAN [Concomitant]
     Indication: HAEMORRHOIDS
     Dosage: UNK, AS NEEDED
     Dates: start: 20081015

REACTIONS (2)
  - PNEUMONIA [None]
  - UPPER RESPIRATORY TRACT INFLAMMATION [None]
